FAERS Safety Report 6645294-7 (Version None)
Quarter: 2010Q1

REPORT INFORMATION
  Report Type: 
  Country: None (occurrence: None)
  Receive Date: 20100322
  Receipt Date: 20100316
  Transmission Date: 20100710
  Serious: Yes (Other)
  Sender: FDA-Public Use
  Company Number: GB-ABBOTT-10P-167-0632883-00

PATIENT
  Age: 49 Year
  Sex: Male
  Weight: 108 kg

DRUGS (5)
  1. REDUCTIL 15MG [Suspect]
     Indication: WEIGHT CONTROL
     Route: 048
     Dates: start: 20090618, end: 20100205
  2. GLUCOPHAGE SR [Concomitant]
     Indication: TYPE 2 DIABETES MELLITUS
     Route: 048
     Dates: start: 20090403
  3. GLICLAZIDE [Concomitant]
     Indication: DRUG USE FOR UNKNOWN INDICATION
     Dosage: 40 MG EVERY MORNING
     Route: 048
     Dates: start: 20080822
  4. ASPIRIN [Concomitant]
     Indication: TYPE 2 DIABETES MELLITUS
     Dosage: 75 MG EVERY MORNING
     Route: 048
     Dates: start: 20040615
  5. ATORVASTATIN CALCIUM [Concomitant]
     Indication: DRUG USE FOR UNKNOWN INDICATION
     Route: 048
     Dates: start: 20050601

REACTIONS (1)
  - ISCHAEMIC STROKE [None]
